FAERS Safety Report 23743313 (Version 3)
Quarter: 2024Q2

REPORT INFORMATION
  Report Type: Spontaneous
  Country: SE (occurrence: SE)
  Receive Date: 20240415
  Receipt Date: 20240605
  Transmission Date: 20240715
  Serious: Yes (Other)
  Sender: FDA-Public Use
  Company Number: None

PATIENT
  Age: 34 Year
  Sex: Male
  Weight: 73 kg

DRUGS (3)
  1. RINVOQ [Suspect]
     Active Substance: UPADACITINIB
     Indication: Crohn^s disease
     Dosage: STRENGTH: 45 MG
     Route: 048
     Dates: start: 20231207, end: 20240410
  2. FLAGYL [Concomitant]
     Active Substance: METRONIDAZOLE\METRONIDAZOLE HYDROCHLORIDE
     Indication: Product used for unknown indication
     Dosage: STRENGTH: 400 MG. TWO TABLETS DAILY
     Route: 048
     Dates: start: 20171123
  3. Adalimumab fkjp [Concomitant]
     Indication: Product used for unknown indication
     Route: 058
     Dates: start: 20171004, end: 20240410

REACTIONS (3)
  - Semen viscosity abnormal [Not Recovered/Not Resolved]
  - Semen discolouration [Not Recovered/Not Resolved]
  - Semen analysis abnormal [Not Recovered/Not Resolved]

NARRATIVE: CASE EVENT DATE: 20231214
